FAERS Safety Report 7462907-0 (Version None)
Quarter: 2011Q2

REPORT INFORMATION
  Report Type: 
  Country: None (occurrence: None)
  Receive Date: 20110506
  Receipt Date: 20110504
  Transmission Date: 20111010
  Serious: Yes (Hospitalization)
  Sender: FDA-Public Use
  Company Number: AU-ABBOTT-11P-008-0723656-00

PATIENT
  Age: 33 Year
  Sex: Female

DRUGS (5)
  1. HYDROXYUREA [Suspect]
     Indication: PRODUCT USED FOR UNKNOWN INDICATION
  2. METHOTREXATE [Suspect]
     Indication: PRODUCT USED FOR UNKNOWN INDICATION
  3. CYCLOSPORINE [Suspect]
     Indication: PRODUCT USED FOR UNKNOWN INDICATION
  4. HUMIRA [Suspect]
     Indication: PRODUCT USED FOR UNKNOWN INDICATION
  5. ISOTRETINOIN [Suspect]
     Indication: ACNE

REACTIONS (9)
  - PSORIASIS [None]
  - HIRSUTISM [None]
  - APHASIA [None]
  - HEPATIC FUNCTION ABNORMAL [None]
  - CONDITION AGGRAVATED [None]
  - DEPRESSION [None]
  - MENINGITIS VIRAL [None]
  - CONFUSIONAL STATE [None]
  - MALAISE [None]
